FAERS Safety Report 9831183 (Version 3)
Quarter: 2014Q2

REPORT INFORMATION
  Report Type: Report from Study
  Country: GB (occurrence: GB)
  Receive Date: 20140121
  Receipt Date: 20140401
  Transmission Date: 20141212
  Serious: Yes (Death, Other)
  Sender: FDA-Public Use
  Company Number: GB-ROCHE-1335315

PATIENT
  Sex: Female
  Weight: 64 kg

DRUGS (3)
  1. RITUXIMAB [Suspect]
     Indication: RHEUMATOID ARTHRITIS
     Dosage: DATE OF LAST DOSE PRIOR TO SAE : 01/DEC/2011.
     Route: 065
     Dates: start: 20111103, end: 201112
  2. PREDNISOLONE [Concomitant]
  3. CLARITHROMYCIN [Concomitant]

REACTIONS (3)
  - Respiratory failure [Fatal]
  - Pneumonia [Fatal]
  - Pulmonary fibrosis [Unknown]
